FAERS Safety Report 10415169 (Version 1)
Quarter: 2014Q2

REPORT INFORMATION
  Report Type: Spontaneous
  Country: US (occurrence: None)
  Receive Date: 20140604
  Receipt Date: 20140604
  Transmission Date: 20141212
  Serious: No
  Sender: FDA-Public Use
  Company Number: 163-POMAL-14023521

PATIENT
  Age: 64 Year
  Sex: Female
  Weight: 90.7 kg

DRUGS (10)
  1. POMALYST (POMALIDOMIDE) (2 MILLIGRAM, CAPSULES) [Suspect]
     Indication: PLASMA CELL MYELOMA
     Route: 048
     Dates: start: 20130912
  2. NOVOLOG (INSULIN ASPART) [Concomitant]
  3. DEXAMETHASONE [Concomitant]
  4. ZOMETA (ZOLEDRONIC ACID) [Concomitant]
  5. GABAPENTIN [Concomitant]
  6. NEXIUM (ESMOEPRAZOLE) [Concomitant]
  7. NEUPOGEN (FILGRASTIM) [Concomitant]
  8. VITAMIN D (ERGOCALCIFEROL) [Concomitant]
  9. VITAMIN B COMPLEX (B-KOMPLEX ^LEVICA^) [Concomitant]
  10. ZETIA (EZETIMIBE) [Concomitant]

REACTIONS (3)
  - Bronchitis [None]
  - Wheezing [None]
  - Dysphonia [None]
